FAERS Safety Report 19772049 (Version 1)
Quarter: 2021Q3

REPORT INFORMATION
  Report Type: Spontaneous
  Country: US (occurrence: US)
  Receive Date: 20210901
  Receipt Date: 20210901
  Transmission Date: 20211014
  Serious: Yes (Life-Threatening, Disabling, Other)
  Sender: FDA-Public Use
  Company Number: None

PATIENT
  Age: 57 Year
  Sex: Female
  Weight: 85.5 kg

DRUGS (3)
  1. PRILOSEC [Concomitant]
     Active Substance: OMEPRAZOLE MAGNESIUM
  2. VITAMIN D [Concomitant]
     Active Substance: VITAMIN D NOS
  3. ALPRAZOLAM. [Suspect]
     Active Substance: ALPRAZOLAM
     Indication: ANXIETY
     Dosage: ?          QUANTITY:1 TABLET(S);?
     Route: 048

REACTIONS (12)
  - Hyperacusis [None]
  - Headache [None]
  - Myocardial infarction [None]
  - Abdominal pain [None]
  - Hypersensitivity [None]
  - Chest pain [None]
  - Allergy to chemicals [None]
  - Cerebrovascular accident [None]
  - Vomiting [None]
  - Withdrawal syndrome [None]
  - Abdominal pain upper [None]
  - Panic attack [None]

NARRATIVE: CASE EVENT DATE: 20161031
